APPROVED DRUG PRODUCT: ATROPINE SULFATE
Active Ingredient: ATROPINE SULFATE
Strength: 1%
Dosage Form/Route: SOLUTION/DROPS;OPHTHALMIC
Application: A214752 | Product #001 | TE Code: AT1
Applicant: AMNEAL EU LTD
Approved: Jul 14, 2022 | RLD: No | RS: Yes | Type: RX